FAERS Safety Report 19074911 (Version 1)
Quarter: 2021Q1

REPORT INFORMATION
  Report Type: Spontaneous
  Country: TR (occurrence: TR)
  Receive Date: 20210330
  Receipt Date: 20210330
  Transmission Date: 20210420
  Serious: Yes (Hospitalization, Other)
  Sender: FDA-Public Use
  Company Number: NVSC2021TR064591

PATIENT
  Age: 59 Year
  Sex: Male

DRUGS (3)
  1. SANDOSTATIN LAR DEPOT [Suspect]
     Active Substance: OCTREOTIDE ACETATE
     Dosage: UNK
     Route: 065
  2. SANDOSTATIN LAR DEPOT [Suspect]
     Active Substance: OCTREOTIDE ACETATE
  3. SANDOSTATIN LAR DEPOT [Suspect]
     Active Substance: OCTREOTIDE ACETATE
     Indication: ACROMEGALY
     Dosage: UNK
     Route: 065
     Dates: start: 2005

REACTIONS (11)
  - Gastrointestinal examination abnormal [Unknown]
  - Thyroid disorder [Unknown]
  - Oedema [Unknown]
  - Diabetes mellitus [Unknown]
  - COVID-19 [Unknown]
  - Cholelithiasis [Unknown]
  - Infection [Unknown]
  - C-reactive protein increased [Unknown]
  - Cardiac failure [Unknown]
  - Coronary artery occlusion [Unknown]
  - Gait disturbance [Unknown]
